FAERS Safety Report 9555792 (Version 1)
Quarter: 2013Q3

REPORT INFORMATION
  Report Type: Spontaneous
  Country: US (occurrence: US)
  Receive Date: 20130926
  Receipt Date: 20130926
  Transmission Date: 20140515
  Serious: Yes (Hospitalization)
  Sender: FDA-Public Use
  Company Number: US-JNJFOC-20130911219

PATIENT
  Age: 59 Year
  Sex: Male
  Weight: 65.77 kg

DRUGS (1)
  1. REMICADE [Suspect]
     Indication: CROHN^S DISEASE
     Route: 042

REACTIONS (2)
  - Herpes zoster [Not Recovered/Not Resolved]
  - Herpes zoster meningitis [Not Recovered/Not Resolved]
